FAERS Safety Report 5041485-X (Version None)
Quarter: 2006Q3

REPORT INFORMATION
  Report Type: 
  Country: None (occurrence: None)
  Receive Date: 20060703
  Receipt Date: 20060628
  Transmission Date: 20061208
  Serious: Yes (Other)
  Sender: FDA-Public Use
  Company Number: GB-BRISTOL-MYERS SQUIBB COMPANY-13429394

PATIENT
  Age: 82 Year
  Sex: Female

DRUGS (8)
  1. SINEMET [Suspect]
     Route: 048
  2. ATENOLOL [Concomitant]
  3. BEZAFIBRATE [Concomitant]
  4. PRAMIPEXOLE HCL [Concomitant]
  5. DIAZEPAM [Concomitant]
  6. THYROXINE [Concomitant]
  7. VITAMIN D [Concomitant]
  8. BETAXOLOL [Concomitant]
     Route: 047

REACTIONS (2)
  - ADENOMA BENIGN [None]
  - CATECHOLAMINES URINE INCREASED [None]
